FAERS Safety Report 9819347 (Version 3)
Quarter: 2014Q1

REPORT INFORMATION
  Report Type: Spontaneous
  Country: US (occurrence: US)
  Receive Date: 20140115
  Receipt Date: 20140304
  Transmission Date: 20141002
  Serious: Yes (Other)
  Sender: FDA-Public Use
  Company Number: US-PFIZER INC-2014010561

PATIENT
  Age: 78 Year
  Sex: Female

DRUGS (2)
  1. XALATAN [Suspect]
     Dosage: 7.5 ML, 1 QHS OR HS
     Route: 047
  2. BETOPTIC [Concomitant]
     Dosage: 0.25 %, 1 QHS OR BID

REACTIONS (5)
  - Eye swelling [Unknown]
  - Eye inflammation [Unknown]
  - Ocular hyperaemia [Unknown]
  - Product quality issue [Unknown]
  - Eye irritation [Unknown]
